FAERS Safety Report 20896555 (Version 4)
Quarter: 2022Q2

REPORT INFORMATION
  Report Type: Other
  Country: CA (occurrence: None)
  Receive Date: 20220531
  Receipt Date: 20220616
  Transmission Date: 20220721
  Serious: No
  Sender: FDA-Public Use
  Company Number: CA-ROCHE-3105599

PATIENT
  Age: 61 Year
  Sex: Male

DRUGS (1)
  1. OCREVUS [Suspect]
     Active Substance: OCRELIZUMAB
     Indication: Relapsing-remitting multiple sclerosis
     Dosage: 300 MG AT DAY 0 AND 14, THEN 600 MG EVERY 6 MONTH?CONCENTRATE FOR INTRAVENOUS INFUSION
     Route: 042
     Dates: start: 20180327

REACTIONS (2)
  - COVID-19 [Unknown]
  - Nasal discharge discolouration [Unknown]

NARRATIVE: CASE EVENT DATE: 20220526
